FAERS Safety Report 6257302-6 (Version None)
Quarter: 2009Q2

REPORT INFORMATION
  Report Type: 
  Country: None (occurrence: None)
  Receive Date: 20090630
  Receipt Date: 20090630
  Transmission Date: 20091009
  Serious: Yes (Other)
  Sender: FDA-Public Use
  Company Number: None

PATIENT
  Age: 51 Year
  Sex: Male
  Weight: 74.3899 kg

DRUGS (2)
  1. PROPOFOL [Suspect]
     Indication: COLONOSCOPY
     Dosage: 250MG TOTAL FOR  CASE IV
     Route: 042
  2. PROPOFOL [Suspect]
     Indication: SEDATION
     Dosage: 250MG TOTAL FOR  CASE IV
     Route: 042

REACTIONS (1)
  - CHILLS [None]
